FAERS Safety Report 15135962 (Version 1)
Quarter: 2018Q3

REPORT INFORMATION
  Report Type: Not Available
  Country: US (occurrence: US)
  Receive Date: 20180712
  Receipt Date: 20180712
  Transmission Date: 20181010
  Serious: No
  Sender: FDA-Public Use
  Company Number: US-NEUROCRINE BIOSCIENCES INC.-2018NBI01975

PATIENT
  Sex: Male

DRUGS (4)
  1. INGREZZA [Suspect]
     Active Substance: VALBENAZINE
     Indication: TARDIVE DYSKINESIA
     Route: 048
     Dates: start: 20180406, end: 20180506
  2. DEPAKOTE [Concomitant]
     Active Substance: DIVALPROEX SODIUM
  3. INVEGA [Concomitant]
     Active Substance: PALIPERIDONE
  4. LITHIUM. [Concomitant]
     Active Substance: LITHIUM

REACTIONS (1)
  - Dyskinesia [Unknown]

NARRATIVE: CASE EVENT DATE: 2018
